FAERS Safety Report 21125542 (Version 1)
Quarter: 2022Q3

REPORT INFORMATION
  Report Type: Spontaneous
  Country: US (occurrence: None)
  Receive Date: 20220722
  Receipt Date: 20220722
  Transmission Date: 20221026
  Serious: Yes (Life-Threatening, Hospitalization)
  Sender: FDA-Public Use
  Company Number: None

PATIENT
  Age: 56 Year
  Sex: Female
  Weight: 94.5 kg

DRUGS (1)
  1. JARDIANCE [Suspect]
     Active Substance: EMPAGLIFLOZIN
     Indication: Glucose tolerance impaired
     Dosage: OTHER QUANTITY : 1 TABLET(S);?FREQUENCY : AT BEDTIME;?
     Route: 048
     Dates: end: 20220715

REACTIONS (13)
  - Loss of consciousness [None]
  - Blood pressure decreased [None]
  - Palpitations [None]
  - Malaise [None]
  - Urinary tract infection [None]
  - Dehydration [None]
  - Nausea [None]
  - Hypophagia [None]
  - Headache [None]
  - Blood glucose decreased [None]
  - Diabetic ketoacidosis [None]
  - Anion gap increased [None]
  - Blood potassium decreased [None]

NARRATIVE: CASE EVENT DATE: 20220703
